FAERS Safety Report 6881076-9 (Version None)
Quarter: 2010Q3

REPORT INFORMATION
  Report Type: 
  Country: None (occurrence: None)
  Receive Date: 20100727
  Receipt Date: 20100714
  Transmission Date: 20110219
  Serious: Yes (Hospitalization)
  Sender: FDA-Public Use
  Company Number: US-BIOGENIDEC-2009BI041060

PATIENT
  Age: 54 Year
  Sex: Male
  Weight: 71 kg

DRUGS (17)
  1. TYSABRI [Suspect]
     Indication: MULTIPLE SCLEROSIS
     Route: 042
     Dates: start: 20091002
  2. FRAGMIN [Concomitant]
     Indication: COAGULOPATHY
     Dosage: DOSE UNIT:17250
     Route: 058
     Dates: start: 20080301
  3. DIOVAN [Concomitant]
     Indication: HYPERTENSION
  4. LEVOTHYROXINE [Concomitant]
     Indication: HYPOTHYROIDISM
     Dates: start: 19800101
  5. BACLOFEN [Concomitant]
     Indication: MUSCLE SPASMS
     Dates: start: 20090801
  6. VALIUM [Concomitant]
     Indication: ANXIETY
     Dates: start: 20080101
  7. VALIUM [Concomitant]
     Indication: SLEEP DISORDER
     Dates: start: 20080101
  8. FENTANYL-75 [Concomitant]
     Indication: BREAKTHROUGH PAIN
  9. FENTANYL-75 [Concomitant]
     Indication: BACK PAIN
  10. TEMAZEPAM [Concomitant]
     Indication: SLEEP DISORDER
  11. KLONOPIN [Concomitant]
     Indication: ANXIETY
  12. TRAZODONE [Concomitant]
     Indication: SLEEP DISORDER
  13. ASPIRIN [Concomitant]
     Indication: PRODUCT USED FOR UNKNOWN INDICATION
  14. METOPROLOL TARTRATE [Concomitant]
     Indication: HYPERTENSION
  15. BUPROPION [Concomitant]
     Indication: DEPRESSION
     Dates: start: 20090701
  16. ATORVASTATIN CALCIUM [Concomitant]
     Indication: HYPERCHOLESTEROLAEMIA
     Dates: start: 20020101
  17. VICODIN [Concomitant]
     Indication: NEPHROLITHIASIS
     Dates: start: 20000101

REACTIONS (3)
  - BRADYCARDIA [None]
  - CORONARY ARTERY DISEASE [None]
  - ORAL FUNGAL INFECTION [None]
